FAERS Safety Report 9434288 (Version 2)
Quarter: 2013Q3

REPORT INFORMATION
  Report Type: Spontaneous
  Country: US (occurrence: US)
  Receive Date: 20130801
  Receipt Date: 20130805
  Transmission Date: 20140515
  Serious: Yes (Hospitalization)
  Sender: FDA-Public Use
  Company Number: US-009507513-1307USA010656

PATIENT
  Age: 55 Year
  Sex: Female

DRUGS (1)
  1. LIPTRUZET [Suspect]
     Indication: HYPERLIPIDAEMIA
     Dosage: STRENGTH:10MG/20 MG 1 STANDARD PACKAGE BLSTRPACK OF 7,DOSE:10/20 ONCE PER DAY
     Route: 048
     Dates: start: 20130712, end: 20130716

REACTIONS (2)
  - Pyelonephritis [Not Recovered/Not Resolved]
  - Myalgia [Not Recovered/Not Resolved]
